FAERS Safety Report 6902236-4 (Version None)
Quarter: 2010Q3

REPORT INFORMATION
  Report Type: 
  Country: None (occurrence: None)
  Receive Date: 20100803
  Receipt Date: 20080505
  Transmission Date: 20110219
  Serious: Yes (Hospitalization)
  Sender: FDA-Public Use
  Company Number: US-PFIZER INC-2008033689

PATIENT
  Sex: Female
  Weight: 70.8 kg

DRUGS (4)
  1. LYRICA [Suspect]
     Indication: FIBROMYALGIA
     Dates: start: 20080229
  2. OXYCODONE [Concomitant]
  3. ZANAFLEX [Concomitant]
  4. KLONOPIN [Concomitant]

REACTIONS (4)
  - BALANCE DISORDER [None]
  - DISORIENTATION [None]
  - LETHARGY [None]
  - PYREXIA [None]
